FAERS Safety Report 21492395 (Version 1)
Quarter: 2022Q4

REPORT INFORMATION
  Report Type: Spontaneous
  Country: US (occurrence: US)
  Receive Date: 20221021
  Receipt Date: 20221021
  Transmission Date: 20230113
  Serious: No
  Sender: FDA-Public Use
  Company Number: US-ASTELLAS PHARMA EUROPE B.V.-2022US034267

PATIENT
  Age: 79 Year
  Sex: Male

DRUGS (3)
  1. ENZALUTAMIDE [Interacting]
     Active Substance: ENZALUTAMIDE
     Indication: Product used for unknown indication
     Dosage: 160 MG, QD
     Route: 065
  2. FLOMAX [Interacting]
     Active Substance: TAMSULOSIN HYDROCHLORIDE
     Indication: Product used for unknown indication
     Route: 065
  3. FLOMAX [Interacting]
     Active Substance: TAMSULOSIN HYDROCHLORIDE
     Dosage: UNK
     Route: 065

REACTIONS (1)
  - Drug interaction [Unknown]

NARRATIVE: CASE EVENT DATE: 20220923
